FAERS Safety Report 10955416 (Version 1)
Quarter: 2015Q1

REPORT INFORMATION
  Report Type: Spontaneous
  Country: US (occurrence: US)
  Receive Date: 20150326
  Receipt Date: 20150326
  Transmission Date: 20150721
  Serious: Yes (Other)
  Sender: FDA-Public Use
  Company Number: US-CIPLA LTD.-2015US02171

PATIENT

DRUGS (4)
  1. DOCETAXEL. [Suspect]
     Active Substance: DOCETAXEL
     Indication: PANCREATIC CARCINOMA
     Dosage: 30 MG/M2, DAYS 4 AND 11
  2. CAPECITABINE. [Suspect]
     Active Substance: CAPECITABINE
     Indication: PANCREATIC CARCINOMA
     Dosage: 1500 MG/M2, DAYS 4 AND 11
  3. CAPECITABINE. [Suspect]
     Active Substance: CAPECITABINE
     Dosage: 600 MG/M2, FOR 12 DAYS
  4. GEMCITABINE [Suspect]
     Active Substance: GEMCITABINE\GEMCITABINE HYDROCHLORIDE
     Indication: PANCREATIC CARCINOMA
     Dosage: 750 MG/M2, DAYS 4 AND 11

REACTIONS (1)
  - Retinal vein occlusion [Unknown]
